FAERS Safety Report 6898343-5 (Version None)
Quarter: 2010Q3

REPORT INFORMATION
  Report Type: 
  Country: None (occurrence: None)
  Receive Date: 20100802
  Receipt Date: 20071005
  Transmission Date: 20110219
  Serious: No
  Sender: FDA-Public Use
  Company Number: US-PFIZER INC-2007083023

PATIENT
  Sex: Male

DRUGS (2)
  1. LYRICA [Suspect]
     Indication: NECK PAIN
  2. ANALGESICS [Concomitant]

REACTIONS (4)
  - ANXIETY [None]
  - NECK PAIN [None]
  - NERVOUSNESS [None]
  - THERAPEUTIC RESPONSE DECREASED [None]
